FAERS Safety Report 12898356 (Version 2)
Quarter: 2016Q4

REPORT INFORMATION
  Report Type: Spontaneous
  Country: US (occurrence: US)
  Receive Date: 20161031
  Receipt Date: 20161101
  Transmission Date: 20170207
  Serious: No
  Sender: FDA-Public Use
  Company Number: US-MISSION PHARMACAL COMPANY-1059111

PATIENT
  Age: 52 Year
  Sex: Female

DRUGS (2)
  1. THIOLA [Suspect]
     Active Substance: TIOPRONIN
     Route: 065
     Dates: start: 20160401
  2. THIOLA [Suspect]
     Active Substance: TIOPRONIN
     Indication: CYSTINURIA
     Route: 065
     Dates: start: 20160401

REACTIONS (3)
  - Arthralgia [Unknown]
  - Musculoskeletal stiffness [Unknown]
  - Drug ineffective [Unknown]
